FAERS Safety Report 7860357-6 (Version None)
Quarter: 2011Q4

REPORT INFORMATION
  Report Type: 
  Country: None (occurrence: None)
  Receive Date: 20111027
  Receipt Date: 20111014
  Transmission Date: 20120403
  Serious: Yes (Hospitalization)
  Sender: FDA-Public Use
  Company Number: US-ELI_LILLY_AND_COMPANY-US201004003923

PATIENT
  Sex: Female

DRUGS (5)
  1. FORTEO [Suspect]
     Dosage: 20 UG, DAILY (1/D)
  2. FORTEO [Suspect]
     Dosage: 20 UG, DAILY (1/D)
  3. FORTEO [Suspect]
     Indication: OSTEOPOROSIS
     Dosage: 20 UG, DAILY (1/D)
     Route: 065
  4. FORTEO [Suspect]
     Dosage: 20 UG, DAILY (1/D)
  5. FORTEO [Suspect]
     Dosage: 20 UG, QD

REACTIONS (16)
  - PAIN IN EXTREMITY [None]
  - WEIGHT DECREASED [None]
  - MUSCULAR WEAKNESS [None]
  - JOINT CREPITATION [None]
  - CHEST DISCOMFORT [None]
  - ARTHRALGIA [None]
  - PAIN [None]
  - GAIT DISTURBANCE [None]
  - ARTHROPATHY [None]
  - PYREXIA [None]
  - ARTHRITIS [None]
  - DYSSTASIA [None]
  - MEMORY IMPAIRMENT [None]
  - MUSCLE SPASMS [None]
  - ABDOMINAL PAIN UPPER [None]
  - FATIGUE [None]
